FAERS Safety Report 7764618-0 (Version None)
Quarter: 2011Q3

REPORT INFORMATION
  Report Type: 
  Country: None (occurrence: None)
  Receive Date: 20110921
  Receipt Date: 20110912
  Transmission Date: 20111222
  Serious: Yes (Hospitalization, Other)
  Sender: FDA-Public Use
  Company Number: PHHY2009CA34090

PATIENT
  Sex: Male

DRUGS (10)
  1. EXJADE [Suspect]
     Dosage: 2000 MG, UKN
     Route: 048
  2. TYLENOL-500 [Concomitant]
     Dosage: 500 MG, UNK
  3. BENADRYL [Concomitant]
  4. EXJADE [Suspect]
     Indication: IRON OVERLOAD
     Dosage: 3 G, UNK
     Route: 048
     Dates: start: 20090731
  5. BLOOD TRANSFUSION, AUXILIARY PRODUCTS [Concomitant]
  6. COENZYME Q10 [Concomitant]
     Dosage: 1 DF, QD
  7. EXJADE [Suspect]
     Indication: APLASTIC ANAEMIA
     Dosage: 2 G, UNK
     Route: 048
     Dates: start: 20090731
  8. EXJADE [Suspect]
     Dosage: 1500 MG, UNK
     Route: 048
  9. ALLOPURINOL [Concomitant]
     Dosage: 100 MG, QD
     Route: 048
     Dates: start: 19950101
  10. MULTI-VITAMIN [Concomitant]
     Dosage: 1 DF, QD
     Route: 048

REACTIONS (7)
  - URINARY TRACT INFECTION [None]
  - CHROMATURIA [None]
  - INFECTION [None]
  - WHITE BLOOD CELL COUNT DECREASED [None]
  - NEUTROPHIL COUNT DECREASED [None]
  - GINGIVAL BLEEDING [None]
  - DIARRHOEA [None]
